FAERS Safety Report 13543071 (Version 1)
Quarter: 2017Q2

REPORT INFORMATION
  Report Type: Spontaneous
  Country: US (occurrence: US)
  Receive Date: 20170512
  Receipt Date: 20170512
  Transmission Date: 20170830
  Serious: Yes (Other)
  Sender: FDA-Public Use
  Company Number: None

PATIENT
  Age: 50 Year
  Sex: Female
  Weight: 67.13 kg

DRUGS (2)
  1. LAMOTRIGINE 100 MG TARO [Suspect]
     Active Substance: LAMOTRIGINE
     Indication: JUVENILE MYOCLONIC EPILEPSY
     Dosage: 400 IN AM 500 PM BID PO
     Route: 048
     Dates: start: 20160418
  2. ZONEGRAN [Concomitant]
     Active Substance: ZONISAMIDE

REACTIONS (4)
  - Condition aggravated [None]
  - Generalised tonic-clonic seizure [None]
  - Product substitution issue [None]
  - Myoclonic epilepsy [None]

NARRATIVE: CASE EVENT DATE: 20170506
